FAERS Safety Report 20387897 (Version 1)
Quarter: 2022Q1

REPORT INFORMATION
  Report Type: Spontaneous
  Country: US (occurrence: US)
  Receive Date: 20220128
  Receipt Date: 20220128
  Transmission Date: 20220423
  Serious: No
  Sender: FDA-Public Use
  Company Number: US-ALLERGAN-2115910US

PATIENT
  Sex: Female

DRUGS (3)
  1. BOTOX [Suspect]
     Active Substance: ONABOTULINUMTOXINA
     Indication: Post-traumatic headache
     Dosage: 195 UNITS, SINGLE
     Dates: start: 20201106, end: 20201106
  2. BOTOX [Suspect]
     Active Substance: ONABOTULINUMTOXINA
     Dosage: 155 UNITS, SINGLE
  3. BOTOX [Suspect]
     Active Substance: ONABOTULINUMTOXINA
     Dosage: SINGLE, FIRST DOSE

REACTIONS (23)
  - Facial paralysis [Not Recovered/Not Resolved]
  - Respiratory tract congestion [Unknown]
  - Chest discomfort [Unknown]
  - Photosensitivity reaction [Unknown]
  - Headache [Unknown]
  - Rash erythematous [Unknown]
  - Dizziness [Unknown]
  - Eye pruritus [Unknown]
  - Insomnia [Unknown]
  - Eye pain [Unknown]
  - Fatigue [Unknown]
  - Dyspepsia [Unknown]
  - Ear discomfort [Unknown]
  - Tension headache [Unknown]
  - Pharyngeal hypoaesthesia [Unknown]
  - Swelling face [Unknown]
  - Pruritus [Unknown]
  - Rash [Unknown]
  - Constipation [Unknown]
  - Vision blurred [Unknown]
  - Diarrhoea [Unknown]
  - Dry eye [Unknown]
  - Drug ineffective [Unknown]
